FAERS Safety Report 6984916 (Version 2)
Quarter: 2014Q2

REPORT INFORMATION
  Report Type: Spontaneous
  Country: US (occurrence: US)
  Receive Date: 20090501
  Receipt Date: 20140410
  Transmission Date: 20141212
  Serious: Yes (Hospitalization)
  Sender: FDA-Public Use
  Company Number: US-ALEXION-A200900008

PATIENT
  Age: 28 Year
  Sex: Female

DRUGS (10)
  1. SOLIRIS [Suspect]
     Indication: PAROXYSMAL NOCTURNAL HAEMOGLOBINURIA
     Dosage: 600 MG, QW
     Route: 042
     Dates: start: 20070918, end: 20071009
  2. SOLIRIS [Suspect]
     Dosage: 900 MG, Q2W
     Route: 042
     Dates: start: 20071016, end: 2009
  3. SOLIRIS [Suspect]
     Dosage: 700 MG, Q2W
     Route: 042
     Dates: start: 2009, end: 20090204
  4. SOLIRIS [Suspect]
     Dosage: UNK
     Route: 042
     Dates: start: 2009
  5. FOLIC ACID [Concomitant]
     Dosage: 1 MG, QD
  6. PROTONIX                           /01263201/ [Concomitant]
     Dosage: 40 MG, QD
  7. LEXAPRO [Concomitant]
     Dosage: 20 MG, QD
  8. AMBIEN [Concomitant]
     Indication: SLEEP DISORDER
     Dosage: 10 MG, PRN, HS
     Route: 048
  9. BIRTH CONTROL PILL [Concomitant]
     Indication: CONTRACEPTION
  10. PHENERGAN                          /00033001/ [Concomitant]
     Dosage: UNK

REACTIONS (2)
  - Gastritis [Unknown]
  - Headache [Unknown]
